FAERS Safety Report 7562583-2 (Version None)
Quarter: 2011Q2

REPORT INFORMATION
  Report Type: 
  Country: None (occurrence: None)
  Receive Date: 20110622
  Receipt Date: 20110610
  Transmission Date: 20111010
  Serious: Yes (Life-Threatening, Other)
  Sender: FDA-Public Use
  Company Number: CA-SANOFI-AVENTIS-2011SA036858

PATIENT
  Age: 79 Year
  Sex: Female

DRUGS (14)
  1. FERRLECIT [Suspect]
     Route: 042
     Dates: start: 20100101, end: 20110501
  2. LOPERAMIDE [Concomitant]
     Dosage: TWICE DAILY AS NEEDED
     Route: 048
  3. ONE-ALPHA [Concomitant]
     Route: 048
  4. ASPIRIN [Concomitant]
     Route: 048
  5. DIGOXIN [Concomitant]
     Route: 048
  6. WARFARIN SODIUM [Concomitant]
     Indication: THROMBOSIS PROPHYLAXIS
     Route: 048
  7. ASPIRIN [Concomitant]
     Indication: PAIN
     Route: 048
  8. HYDROXYZINE [Concomitant]
     Dosage: 3 TIMES DAILY AS NEEDED
     Route: 048
  9. PYRIDOXINE HYDROCHLORIDE [Concomitant]
     Route: 048
  10. LIPITOR [Concomitant]
     Route: 048
  11. FERRLECIT [Suspect]
     Route: 042
     Dates: start: 20100508
  12. HYDROCORTISONE [Concomitant]
     Dosage: APPLY TO EXIT SITE
     Route: 061
  13. METOPROLOL [Concomitant]
     Indication: BLOOD PRESSURE ABNORMAL
     Route: 048
  14. QUINAPRIL HCL [Concomitant]
     Indication: BLOOD PRESSURE MANAGEMENT
     Dosage: 10 MG EVERY MORNING + 5 MG EACH PM
     Route: 048

REACTIONS (6)
  - FAECAL INCONTINENCE [None]
  - LOSS OF CONSCIOUSNESS [None]
  - ABDOMINAL PAIN [None]
  - HYPOTENSION [None]
  - VOMITING [None]
  - HYPOTONIA [None]
